FAERS Safety Report 8903482 (Version 1)
Quarter: 2012Q4

REPORT INFORMATION
  Report Type: 
  Country: US (occurrence: US)
  Receive Date: 20121112
  Receipt Date: 20121112
  Transmission Date: 20130627
  Serious: Yes (Hospitalization)
  Sender: FDA-Public Use
  Company Number: US-PFIZER INC-2012281319

PATIENT
  Sex: Female

DRUGS (1)
  1. EFFEXOR XR [Suspect]
     Dosage: UNK
     Dates: end: 20121017

REACTIONS (4)
  - Anxiety [Unknown]
  - Depression [Unknown]
  - Asthma [Unknown]
  - Chronic obstructive pulmonary disease [Unknown]
